FAERS Safety Report 9264258 (Version 2)
Quarter: 2014Q1

REPORT INFORMATION
  Report Type: Spontaneous
  Country: DK (occurrence: DK)
  Receive Date: 20130430
  Receipt Date: 20140305
  Transmission Date: 20141002
  Serious: Yes (Hospitalization)
  Sender: FDA-Public Use
  Company Number: PHHY2013DK040726

PATIENT
  Age: 74 Year
  Sex: Male

DRUGS (10)
  1. OXAPAX [Suspect]
     Indication: RESTLESSNESS
     Dosage: 15 MG, HALF TO ONE TABLET TWICE DAILY
     Route: 048
     Dates: start: 20130415
  2. ENALAPRILMALEAAT [Concomitant]
  3. LERCANIDIPINA//LERCANIDIPINE HYDROCHLORIDE [Concomitant]
  4. SIMVASTATIN [Concomitant]
  5. FURIX [Concomitant]
  6. HJERTEALBYL [Concomitant]
  7. INSULATARD [Concomitant]
  8. KININ [Concomitant]
  9. ALLOPURINOL [Concomitant]
  10. METFORMIN HYDROCHLORIDE [Concomitant]

REACTIONS (5)
  - Abdominal pain [Recovered/Resolved]
  - Malaise [Recovered/Resolved]
  - Gait disturbance [Recovering/Resolving]
  - Nausea [Recovering/Resolving]
  - Dizziness [Recovering/Resolving]
